FAERS Safety Report 5071612-X (Version None)
Quarter: 2006Q3

REPORT INFORMATION
  Report Type: 
  Country: None (occurrence: None)
  Receive Date: 20060803
  Receipt Date: 20060803
  Transmission Date: 20061208
  Serious: Yes (Hospitalization)
  Sender: FDA-Public Use
  Company Number: None

PATIENT
  Sex: Male
  Weight: 85.3 kg

DRUGS (5)
  1. TEMOZOLOMIDE [Suspect]
     Dosage: 75 MG
  2. BACTRIM [Concomitant]
  3. DECADRON [Concomitant]
  4. DILANTIN [Concomitant]
  5. KEPPRA [Concomitant]

REACTIONS (1)
  - INAPPROPRIATE ANTIDIURETIC HORMONE SECRETION [None]
